FAERS Safety Report 4804243-4 (Version None)
Quarter: 2005Q4

REPORT INFORMATION
  Report Type: 
  Country: None (occurrence: None)
  Receive Date: 20051020
  Receipt Date: 20051010
  Transmission Date: 20060501
  Serious: Yes (Other)
  Sender: FDA-Public Use
  Company Number: US-JNJFOC-20051002207

PATIENT
  Sex: Female
  Weight: 67.13 kg

DRUGS (8)
  1. REMICADE [Suspect]
     Indication: CROHN'S DISEASE
     Route: 042
  2. MERCAPTOPURINE [Concomitant]
     Indication: CROHN'S DISEASE
  3. ASTELIN [Concomitant]
     Route: 045
  4. FLONASE [Concomitant]
     Indication: CROHN'S DISEASE
  5. NITROQUICK [Concomitant]
  6. TRN [Concomitant]
     Route: 042
  7. ADVAIR DISKUS 100/50 [Concomitant]
     Route: 045
  8. ADVAIR DISKUS 100/50 [Concomitant]
     Dosage: BOTH NOSTRILS
     Route: 045

REACTIONS (2)
  - AGGRESSION [None]
  - CONFUSIONAL STATE [None]
